FAERS Safety Report 14885144 (Version 2)
Quarter: 2018Q3

REPORT INFORMATION
  Report Type: Spontaneous
  Country: US (occurrence: US)
  Receive Date: 20180511
  Receipt Date: 20180702
  Transmission Date: 20181010
  Serious: Yes (Other)
  Sender: FDA-Public Use
  Company Number: US-BAUSCH-BL-2018-013659

PATIENT
  Age: 54 Year
  Sex: Male
  Weight: 61.74 kg

DRUGS (1)
  1. UCERIS [Suspect]
     Active Substance: BUDESONIDE
     Indication: COLITIS ULCERATIVE
     Route: 048
     Dates: start: 20180426, end: 20180503

REACTIONS (6)
  - Neck pain [Recovered/Resolved]
  - Nausea [Recovered/Resolved]
  - Heart rate irregular [Recovered/Resolved]
  - Palpitations [Recovered/Resolved]
  - Circulatory collapse [Recovered/Resolved]
  - Chest pain [Recovered/Resolved]

NARRATIVE: CASE EVENT DATE: 20180502
